FAERS Safety Report 9752718 (Version 1)
Quarter: 2013Q4

REPORT INFORMATION
  Report Type: Spontaneous
  Country: US (occurrence: None)
  Receive Date: 20131212
  Receipt Date: 20131212
  Transmission Date: 20140711
  Serious: Yes (Other)
  Sender: FDA-Public Use
  Company Number: None

PATIENT
  Age: 65 Year
  Sex: Male
  Weight: 79.83 kg

DRUGS (1)
  1. GENERIC PLAVIX [Suspect]
     Indication: CORONARY ARTERY DISEASE
     Dosage: 1  QD  PO
     Route: 048
     Dates: start: 20120127, end: 20120921

REACTIONS (3)
  - Abdominal pain [None]
  - Nausea [None]
  - Vomiting [None]
